FAERS Safety Report 7289407-5 (Version None)
Quarter: 2011Q1

REPORT INFORMATION
  Report Type: 
  Country: None (occurrence: None)
  Receive Date: 20110211
  Receipt Date: 20110207
  Transmission Date: 20110831
  Serious: Yes (Death)
  Sender: FDA-Public Use
  Company Number: IT-CELGENEUS-083-50794-11020956

PATIENT
  Sex: Female

DRUGS (10)
  1. PANTOPRAZOLE [Concomitant]
     Route: 048
  2. PREFOLIC [Concomitant]
     Route: 048
  3. VIDAZA [Suspect]
     Route: 058
     Dates: start: 20110128, end: 20110201
  4. LEVOPRAID [Concomitant]
     Route: 048
  5. KLACID [Concomitant]
     Route: 065
  6. URBASON [Concomitant]
     Route: 051
  7. GABAPENTIN [Concomitant]
     Route: 048
  8. IG VENA [Concomitant]
     Route: 051
  9. TAREG [Concomitant]
     Route: 048
  10. ROCEPHIN [Concomitant]
     Route: 051

REACTIONS (2)
  - GASTROINTESTINAL HAEMORRHAGE [None]
  - THROMBOCYTOPENIA [None]
